FAERS Safety Report 10073235 (Version 3)
Quarter: 2014Q2

REPORT INFORMATION
  Report Type: Report from Study
  Country: US (occurrence: US)
  Receive Date: 20140411
  Receipt Date: 20140528
  Transmission Date: 20141212
  Serious: Yes (Death)
  Sender: FDA-Public Use
  Company Number: US-ACTELION-A-NJ2014-93934

PATIENT
  Age: 69 Year
  Sex: Female

DRUGS (1)
  1. TRACLEER [Suspect]
     Indication: PULMONARY ARTERIAL HYPERTENSION
     Dosage: 125 MG, UNK
     Route: 048

REACTIONS (5)
  - Death [Fatal]
  - Pulmonary arterial hypertension [Unknown]
  - Syncope [Unknown]
  - Condition aggravated [Unknown]
  - Haemoptysis [Unknown]
